FAERS Safety Report 8933018 (Version 2)
Quarter: 2013Q1

REPORT INFORMATION
  Report Type: Spontaneous
  Country: US (occurrence: US)
  Receive Date: 20121128
  Receipt Date: 20130102
  Transmission Date: 20140127
  Serious: No
  Sender: FDA-Public Use
  Company Number: US-009507513-1211USA009862

PATIENT
  Age: 69 None
  Sex: Female

DRUGS (3)
  1. JANUMET [Suspect]
     Indication: DIABETES MELLITUS
     Dosage: 1 TABLET, BID
     Route: 048
     Dates: start: 201111, end: 20121126
  2. NEXIUM [Concomitant]
  3. AMARYL [Concomitant]

REACTIONS (13)
  - Restless legs syndrome [Unknown]
  - Cough [Unknown]
  - Drug dose omission [Unknown]
  - Blood glucose decreased [Unknown]
  - Mobility decreased [Unknown]
  - Arthritis [Unknown]
  - Blood glucose increased [Unknown]
  - Fatigue [Unknown]
  - Dry mouth [Unknown]
  - Arthralgia [Unknown]
  - Osteoarthritis [Unknown]
  - Arthropathy [Unknown]
  - Gait disturbance [Unknown]
